FAERS Safety Report 19078339 (Version 1)
Quarter: 2021Q1

REPORT INFORMATION
  Report Type: Spontaneous
  Country: US (occurrence: US)
  Receive Date: 20210331
  Receipt Date: 20210331
  Transmission Date: 20210420
  Serious: Yes (Hospitalization)
  Sender: FDA-Public Use
  Company Number: None

PATIENT
  Age: 58 Year
  Sex: Female

DRUGS (12)
  1. DILTIAZEM. [Concomitant]
     Active Substance: DILTIAZEM
  2. ATORVASTATI N [Concomitant]
  3. SILDENAFIL. [Suspect]
     Active Substance: SILDENAFIL
     Indication: PULMONARY ARTERIAL HYPERTENSION
     Route: 048
     Dates: start: 20190805
  4. METOPROL SUC [Concomitant]
  5. ELIQUIS [Concomitant]
     Active Substance: APIXABAN
  6. MORPHINE SUL [Concomitant]
     Active Substance: MORPHINE SULFATE
  7. BUMETANIDE. [Concomitant]
     Active Substance: BUMETANIDE
  8. SPRINOLOACT [Concomitant]
  9. CALCIUM [Concomitant]
     Active Substance: CALCIUM
  10. GABAPENTIN. [Concomitant]
     Active Substance: GABAPENTIN
  11. MIRTAZPINE [Concomitant]
     Active Substance: MIRTAZAPINE
  12. BACLOFEN. [Concomitant]
     Active Substance: BACLOFEN

REACTIONS (2)
  - Pneumonia [None]
  - Oxygen saturation decreased [None]

NARRATIVE: CASE EVENT DATE: 20210330
